FAERS Safety Report 17706138 (Version 1)
Quarter: 2020Q2

REPORT INFORMATION
  Report Type: Spontaneous
  Country: LT (occurrence: LT)
  Receive Date: 20200424
  Receipt Date: 20200424
  Transmission Date: 20200714
  Serious: Yes (Hospitalization)
  Sender: FDA-Public Use
  Company Number: NVSC2020LT110816

PATIENT
  Age: 60 Year
  Sex: Male
  Weight: 70 kg

DRUGS (2)
  1. ZOLPIDEM [Suspect]
     Active Substance: ZOLPIDEM TARTRATE
     Indication: INSOMNIA
     Dosage: UNK (SUPPOSEDLY 5 TABLETS)
     Route: 048
     Dates: start: 20200103, end: 20200103
  2. CAPTOPRIL. [Suspect]
     Active Substance: CAPTOPRIL
     Indication: INSOMNIA
     Dosage: UNK (SUPPOSEDLY 2 TABLETS)
     Route: 048
     Dates: start: 20200103, end: 20200103

REACTIONS (2)
  - Asthenia [Recovered/Resolved]
  - Somnolence [Recovered/Resolved]

NARRATIVE: CASE EVENT DATE: 20200103
